FAERS Safety Report 4867496-2 (Version None)
Quarter: 2005Q4

REPORT INFORMATION
  Report Type: 
  Country: None (occurrence: None)
  Receive Date: 20051228
  Receipt Date: 20051216
  Transmission Date: 20060501
  Serious: Yes (Hospitalization)
  Sender: FDA-Public Use
  Company Number: US-MERCK-0512USA03184

PATIENT
  Age: 47 Year
  Sex: Female

DRUGS (20)
  1. ZOCOR [Suspect]
     Route: 048
     Dates: start: 20010329, end: 20020313
  2. ZOCOR [Suspect]
     Route: 048
     Dates: start: 20020313, end: 20021019
  3. VERAPAMIL [Concomitant]
     Route: 048
     Dates: start: 20010329, end: 20010427
  4. VERAPAMIL [Concomitant]
     Route: 048
     Dates: start: 20010427, end: 20020313
  5. VERAPAMIL [Concomitant]
     Route: 048
     Dates: start: 20020313, end: 20020614
  6. GLUCOPHAGE [Concomitant]
     Route: 048
     Dates: end: 20010818
  7. AMARYL [Concomitant]
     Route: 048
  8. INSULIN [Concomitant]
     Route: 065
  9. NITROGLYCERIN [Concomitant]
     Route: 065
     Dates: end: 20010329
  10. ISORDIL [Concomitant]
     Route: 048
     Dates: start: 20010329
  11. ASPIRIN [Concomitant]
     Route: 048
     Dates: end: 20010427
  12. VASOTEC [Concomitant]
     Route: 048
     Dates: end: 20010329
  13. LASIX [Concomitant]
     Route: 048
     Dates: start: 20010329, end: 20010427
  14. LASIX [Concomitant]
     Route: 048
     Dates: start: 20010427, end: 20020218
  15. LASIX [Concomitant]
     Route: 048
     Dates: start: 20020218, end: 20021026
  16. POTASSIUM CHLORIDE [Concomitant]
     Route: 048
     Dates: start: 20010329
  17. HYDROCHLOROTHIAZIDE [Concomitant]
     Route: 048
     Dates: end: 20010329
  18. COZAAR [Concomitant]
     Route: 065
     Dates: end: 20020614
  19. COZAAR [Concomitant]
     Route: 065
     Dates: start: 20020614, end: 20031101
  20. INSULIN HUMAN [Concomitant]
     Route: 065
     Dates: start: 20020218

REACTIONS (22)
  - ABSCESS LIMB [None]
  - BREAST MASS [None]
  - CELLULITIS [None]
  - CHOLELITHIASIS [None]
  - DYSPNOEA [None]
  - FALL [None]
  - HEPATOMEGALY [None]
  - HOT FLUSH [None]
  - HYPOAESTHESIA [None]
  - LACERATION [None]
  - MUSCLE SPASMS [None]
  - NECK PAIN [None]
  - NODULE [None]
  - OEDEMA PERIPHERAL [None]
  - ONYCHOMYCOSIS [None]
  - PAIN IN EXTREMITY [None]
  - PIGMENTATION DISORDER [None]
  - POLYMYOSITIS [None]
  - RASH [None]
  - RETINOPATHY [None]
  - RHABDOMYOLYSIS [None]
  - SHOULDER PAIN [None]
